FAERS Safety Report 23293704 (Version 3)
Quarter: 2024Q4

REPORT INFORMATION
  Report Type: Spontaneous
  Country: BE (occurrence: BE)
  Receive Date: 20231213
  Receipt Date: 20241205
  Transmission Date: 20250115
  Serious: Yes (Death, Hospitalization, Other)
  Sender: ALEXION PHARMACEUTICALS
  Company Number: None

PATIENT
  Age: 85 Year

DRUGS (35)
  1. DAPAGLIFLOZIN [Suspect]
     Active Substance: DAPAGLIFLOZIN
     Indication: Cardiac failure
     Dosage: 10 MG, QD
  2. DAPAGLIFLOZIN [Suspect]
     Active Substance: DAPAGLIFLOZIN
     Dosage: 10 MG, QD
  3. BISOPROLOL [Suspect]
     Active Substance: BISOPROLOL
     Indication: Hypertension
     Dosage: 2.5 MG, QID (0.25 PER DAY)
  4. CORDARONE [Suspect]
     Active Substance: AMIODARONE HYDROCHLORIDE
     Indication: Atrial fibrillation
     Dosage: 200 MILLIGRAM, UNK, FREQUENCY: UNK
  5. SIMVASTATIN [Concomitant]
     Active Substance: SIMVASTATIN
     Indication: Hypercholesterolaemia
     Dosage: 20 MG, QD
  6. TAMSULOSIN HYDROCHLORIDE [Suspect]
     Active Substance: TAMSULOSIN HYDROCHLORIDE
     Indication: Benign prostatic hyperplasia
     Dosage: 0.4 MG, QD
  7. TAMSULOSIN HYDROCHLORIDE [Suspect]
     Active Substance: TAMSULOSIN HYDROCHLORIDE
     Dosage: 0.4 MG, QD
  8. DEXPANTHENOL [Suspect]
     Active Substance: DEXPANTHENOL
     Indication: Gastric ulcer
     Dosage: 40 MG, QD
  9. BUMETANIDE [Suspect]
     Active Substance: BUMETANIDE
     Indication: Cardiac failure
     Dosage: 1 MG, QD
  10. BUMETANIDE [Suspect]
     Active Substance: BUMETANIDE
     Dosage: 1 MG, QOD EVERY 2 DAYS
  11. BUMETANIDE [Suspect]
     Active Substance: BUMETANIDE
     Dosage: 1 MG, QD
  12. BUMETANIDE [Suspect]
     Active Substance: BUMETANIDE
     Dosage: 2 MG, QD
  13. EDOXABAN [Suspect]
     Active Substance: EDOXABAN
     Indication: Thrombosis prophylaxis
     Dosage: 30 MG, QD
  14. SPIRONOLACTONE [Suspect]
     Active Substance: SPIRONOLACTONE
     Indication: Cardiac failure
     Dosage: 25 MG, QD, FREQUENCY: UNK
  15. SPIRONOLACTONE [Suspect]
     Active Substance: SPIRONOLACTONE
     Dosage: 25 MG, QD, FREQUENCY: UNK
  16. SPIRONOLACTONE [Suspect]
     Active Substance: SPIRONOLACTONE
     Dosage: 25 MG, QD, FREQUENCY: UNK
  17. 1-ALPHA LEO [Concomitant]
     Indication: Vitamin D deficiency
     Dosage: 0.25 UG QD PO SINCE 23MAY2023
  18. ENTRESTO [Suspect]
     Active Substance: SACUBITRIL\VALSARTAN
     Indication: Cardiac failure
     Dosage: 24/26 MG 0.5 TABLET TWICE DAILY (BID) PO
  19. ACORAMIDIS [Concomitant]
     Active Substance: ACORAMIDIS
     Indication: Cardiac amyloidosis
     Dosage: UNK, LAST DOSE PRIOR TO THE EVENT ONSET WAS ON 30-SEP-2023
  20. ACORAMIDIS [Concomitant]
     Active Substance: ACORAMIDIS
     Dosage: 800 MG, QD
  21. ENOXAPARIN SODIUM [Concomitant]
     Active Substance: ENOXAPARIN SODIUM
     Indication: Thrombosis
     Dosage: 40 MG, QID (0.25/DAY)
  22. EDOXABAN TOSYLATE [Concomitant]
     Active Substance: EDOXABAN TOSYLATE
  23. EDOXABAN TOSYLATE [Concomitant]
     Active Substance: EDOXABAN TOSYLATE
  24. SODIUM BICARBONATE [Concomitant]
     Active Substance: SODIUM BICARBONATE
     Indication: Prophylaxis against dehydration
     Dosage: 1 G THRICE DAILY (TID) PO
  25. DARBEPOETIN ALFA [Concomitant]
     Active Substance: DARBEPOETIN ALFA
     Indication: Product used for unknown indication
     Dosage: 40 UG, Q2W
  26. ZOLPIDEM [Concomitant]
     Active Substance: ZOLPIDEM TARTRATE
     Indication: Product used for unknown indication
     Dosage: 10 MG, ONCE/SINGLE
  27. MORPHINE [Concomitant]
     Active Substance: MORPHINE
     Indication: Product used for unknown indication
     Dosage: 5 MG
  28. MORPHINE [Concomitant]
     Active Substance: MORPHINE
     Dosage: 5 MG
  29. SCOPOLAMINE HYDROBROMIDE [Concomitant]
     Active Substance: SCOPOLAMINE HYDROBROMIDE
     Indication: Product used for unknown indication
     Dosage: 7.5 ML
  30. ALDACTONE [Concomitant]
     Active Substance: SPIRONOLACTONE
     Indication: Cardiac failure acute
     Dosage: 200 MG
  31. ALDACTONE [Concomitant]
     Active Substance: SPIRONOLACTONE
     Dosage: 25 MG
  32. PIPERACILLIN SODIUM\TAZOBACTAM SODIUM [Concomitant]
     Active Substance: PIPERACILLIN SODIUM\TAZOBACTAM SODIUM
     Indication: Pneumonia
     Dosage: 4 G, QD
  33. ULTRA K [Concomitant]
     Indication: Product used for unknown indication
     Dosage: 15 ML
  34. ACETAMINOPHEN [Concomitant]
     Active Substance: ACETAMINOPHEN
     Indication: Product used for unknown indication
     Dosage: 1 G, AS NEEDED
  35. ACETAMINOPHEN [Concomitant]
     Active Substance: ACETAMINOPHEN
     Dosage: 500 MG, QD

REACTIONS (15)
  - Acute kidney injury [Recovered/Resolved]
  - Loss of consciousness [Unknown]
  - Hypotension [Unknown]
  - Cardiac failure [Recovered/Resolved]
  - Dehydration [Recovered/Resolved]
  - Pneumonia [Fatal]
  - Atrioventricular block [Recovered/Resolved]
  - Cardiomegaly [Unknown]
  - Dizziness [Unknown]
  - Presyncope [Unknown]
  - Cardiac failure congestive [Fatal]
  - Acute kidney injury [Unknown]
  - Liver function test abnormal [Unknown]
  - Haematuria [Unknown]
  - Cardiac failure congestive [Fatal]
